FAERS Safety Report 17453033 (Version 6)
Quarter: 2020Q3

REPORT INFORMATION
  Report Type: Report from Study
  Country: US (occurrence: US)
  Receive Date: 20200224
  Receipt Date: 20200915
  Transmission Date: 20201102
  Serious: Yes (Hospitalization, Other)
  Sender: FDA-Public Use
  Company Number: US-BAYER-2020-020473

PATIENT
  Age: 63 Year
  Sex: Female
  Weight: 53 kg

DRUGS (4)
  1. COPANLISIB. [Suspect]
     Active Substance: COPANLISIB
     Indication: NASAL SINUS CANCER
     Dosage: DAYS 1, 8 AND 15
     Route: 042
     Dates: start: 20200129, end: 20200226
  2. COPANLISIB. [Suspect]
     Active Substance: COPANLISIB
     Indication: NASAL SINUS CANCER
     Dosage: 45 MG, DAYS 1, 8 AND 15
     Route: 042
     Dates: start: 20200102, end: 20200109
  3. OLAPARIB. [Suspect]
     Active Substance: OLAPARIB
     Indication: NASAL SINUS CANCER
     Dosage: 200 MG, BID
     Route: 048
     Dates: end: 20200211
  4. OLAPARIB. [Suspect]
     Active Substance: OLAPARIB
     Indication: NASAL SINUS CANCER
     Dosage: 200 MG, BID
     Route: 048
     Dates: start: 20200102, end: 20200115

REACTIONS (5)
  - Neutrophil count decreased [Recovered/Resolved with Sequelae]
  - Pyrexia [Recovered/Resolved with Sequelae]
  - Rash maculo-papular [Recovered/Resolved with Sequelae]
  - Nasal sinus cancer [None]
  - Blood creatinine increased [Recovered/Resolved]

NARRATIVE: CASE EVENT DATE: 20200114
